FAERS Safety Report 6600689-2 (Version None)
Quarter: 2010Q1

REPORT INFORMATION
  Report Type: 
  Country: None (occurrence: None)
  Receive Date: 20100223
  Receipt Date: 20100223
  Transmission Date: 20100710
  Serious: Yes (Life-Threatening)
  Sender: FDA-Public Use
  Company Number: None

PATIENT
  Age: 59 Year
  Sex: Female
  Weight: 89.3586 kg

DRUGS (1)
  1. CLEOCIN [Suspect]
     Indication: TOOTH INFECTION
     Dosage: 150 MG 2 CAPS PO 1 CAP QID QID PO
     Route: 048
     Dates: start: 20091004

REACTIONS (1)
  - MALAISE [None]
